FAERS Safety Report 9844736 (Version 4)
Quarter: 2014Q1

REPORT INFORMATION
  Report Type: Spontaneous
  Country: US (occurrence: US)
  Receive Date: 20140127
  Receipt Date: 20140325
  Transmission Date: 20141002
  Serious: Yes (Life-Threatening, Hospitalization, Other)
  Sender: FDA-Public Use
  Company Number: US-MERCK-1401USA010909

PATIENT
  Age: 52 Year
  Sex: Male
  Weight: 10.88 kg

DRUGS (14)
  1. JANUVIA [Suspect]
     Indication: DIABETES MELLITUS
     Dosage: 100 MG, ONCE DAILY
     Route: 048
     Dates: start: 20130529
  2. KLONOPIN [Concomitant]
     Dosage: 1 TABLET BY MOUTH 4 TIMES DAILY OR AS DIRECTED.
     Route: 048
  3. GLUCOTROL [Concomitant]
     Dosage: 0.5 TABLET BY MOUTH TWICE DAILY 30 MINUTES BEFORE BREAKFAST AND DINNER.
     Route: 048
  4. LOTRIMIN (CLOTRIMAZOLE) [Concomitant]
     Dosage: ONE APPLICATION TO AFFECTED AREA(S) TWICE DAILY
  5. PRINIVIL [Concomitant]
     Dosage: TAKE ONE TABLET BY MOUTH DAILY.
     Route: 048
  6. ZESTRIL [Concomitant]
     Dosage: ONE TABLET BY MOUTH DAILY
     Route: 048
  7. GLUCOPHAGE XR [Concomitant]
     Indication: DIABETES MELLITUS
     Dosage: TAKE 2 TABLETS BY MOUTH DAILY WITH BREAKFAST OR AS DIRECTED FOR DIABETES.
     Route: 048
  8. ZOCOR [Concomitant]
     Indication: BLOOD CHOLESTEROL
     Dosage: ONE TABLET BY MOUTH EACH EVENING FOR CHOLESTEROL
     Route: 048
  9. TOPROL XL TABLETS [Concomitant]
     Dosage: 50 MG, QD
     Route: 048
  10. ULTRAM [Concomitant]
     Dosage: 1 TAB BY MOUTH EVERY 4 TO 6 HOURS AS NEEDED.
     Route: 048
  11. VIAGRA [Concomitant]
     Indication: ERECTILE DYSFUNCTION
     Dosage: TAKE 1 TAB BY MOUTH AS NEEDED.
     Route: 048
  12. NORCO [Concomitant]
     Dosage: ONE TAB BY MOUTH EVERY 4 TO 6 HRS AS NEEDED.
     Route: 048
  13. VITAMINS (UNSPECIFIED) [Concomitant]
     Dosage: 1 PO, QD
     Route: 048
  14. FERROUS SULFATE [Concomitant]
     Dosage: 1 TABLET DAILY
     Route: 048

REACTIONS (7)
  - Perforated ulcer [Unknown]
  - Gastric operation [Unknown]
  - Dysphagia [Unknown]
  - Diarrhoea [Unknown]
  - Wrong technique in drug usage process [Unknown]
  - Explorative laparotomy [Unknown]
  - Drain placement [Unknown]
